FAERS Safety Report 9484782 (Version 1)
Quarter: 2013Q3

REPORT INFORMATION
  Report Type: Spontaneous
  Country: US (occurrence: US)
  Receive Date: 20130828
  Receipt Date: 20130828
  Transmission Date: 20140515
  Serious: Yes (Other)
  Sender: FDA-Public Use
  Company Number: US-AMGEN-USASP2011018116

PATIENT
  Age: 49 Year
  Sex: Female
  Weight: 63.49 kg

DRUGS (10)
  1. ENBREL [Suspect]
     Indication: RHEUMATOID ARTHRITIS
     Dosage: 50 MG, QWK
     Route: 058
     Dates: start: 20110221
  2. CENTRUM SILVER                     /01292501/ [Concomitant]
  3. MELOXICAM [Concomitant]
     Dosage: 15 MG, UNK
  4. VITAMIN E                          /00110501/ [Concomitant]
     Dosage: 1000 UNIT, UNK
  5. VITAMIN C                          /00008001/ [Concomitant]
     Dosage: 1000 MG, UNK
  6. CALCIUM MAGNESIUM [Concomitant]
  7. VITAMIN B12                        /00056201/ [Concomitant]
     Dosage: 1000 UNK, UNK
  8. CRANBERRY                          /01512301/ [Concomitant]
     Dosage: 1000 MG, UNK
  9. ENZYMES [Concomitant]
  10. FOLIC ACID [Concomitant]
     Dosage: 20 MG, UNK

REACTIONS (9)
  - Benign breast neoplasm [Unknown]
  - Emotional disorder [Not Recovered/Not Resolved]
  - Nausea [Unknown]
  - Headache [Unknown]
  - Crying [Not Recovered/Not Resolved]
  - Hyperhidrosis [Not Recovered/Not Resolved]
  - Pain in extremity [Not Recovered/Not Resolved]
  - Amenorrhoea [Not Recovered/Not Resolved]
  - Sinusitis [Not Recovered/Not Resolved]
